FAERS Safety Report 17166437 (Version 5)
Quarter: 2020Q2

REPORT INFORMATION
  Report Type: Spontaneous
  Country: US (occurrence: US)
  Receive Date: 20191217
  Receipt Date: 20200605
  Transmission Date: 20200713
  Serious: No
  Sender: FDA-Public Use
  Company Number: US-PFIZER INC-2019539415

PATIENT
  Age: 74 Year
  Sex: Female

DRUGS (1)
  1. IBRANCE [Suspect]
     Active Substance: PALBOCICLIB
     Dosage: UNK, CYCLIC

REACTIONS (4)
  - Anxiety [Unknown]
  - White blood cell count decreased [Not Recovered/Not Resolved]
  - Stress [Unknown]
  - Off label use [Unknown]
